FAERS Safety Report 15277456 (Version 1)
Quarter: 2018Q3

REPORT INFORMATION
  Report Type: Spontaneous
  Country: US (occurrence: US)
  Receive Date: 20180814
  Receipt Date: 20180814
  Transmission Date: 20181010
  Serious: No
  Sender: FDA-Public Use
  Company Number: US-B.I. PHARMACEUTICALS,INC./RIDGEFIELD-2018-BI-039999

PATIENT
  Sex: Female

DRUGS (1)
  1. OFEV [Suspect]
     Active Substance: NINTEDANIB
     Indication: PRODUCT USED FOR UNKNOWN INDICATION
     Dosage: STRENGTH: 100 MG; ADMINISTRATION CORRECT? NR(NOT REPORTED); ACTION TAKEN WITH PRODUCT: NOT REPORTED
     Route: 048

REACTIONS (2)
  - Nausea [Unknown]
  - Malaise [Unknown]
